FAERS Safety Report 4337873-7 (Version None)
Quarter: 2004Q1

REPORT INFORMATION
  Report Type: 
  Country: None (occurrence: None)
  Receive Date: 20040329
  Receipt Date: 20040220
  Transmission Date: 20041129
  Serious: No
  Sender: FDA-Public Use
  Company Number: USA040259944

PATIENT
  Age: 6 Year
  Sex: Male

DRUGS (2)
  1. STRATTERA [Suspect]
     Dosage: 25 MG/1 DAY
     Dates: start: 20031225
  2. ZYRTEC [Concomitant]

REACTIONS (2)
  - ABDOMINAL PAIN UPPER [None]
  - CHANGE OF BOWEL HABIT [None]
